FAERS Safety Report 8233330-6 (Version None)
Quarter: 2012Q1

REPORT INFORMATION
  Report Type: 
  Country: None (occurrence: None)
  Receive Date: 20120323
  Receipt Date: 20120323
  Transmission Date: 20120608
  Serious: No
  Sender: FDA-Public Use
  Company Number: None

PATIENT
  Age: 56 Year
  Sex: Female

DRUGS (2)
  1. SENSIPAR [Suspect]
  2. SENSIPAR [Suspect]
     Indication: RENAL FAILURE CHRONIC
     Dosage: 60 MG DAILY PO
     Route: 048
     Dates: start: 20111123, end: 20120126

REACTIONS (3)
  - DYSPNOEA [None]
  - VOMITING [None]
  - NAUSEA [None]
